FAERS Safety Report 18545090 (Version 1)
Quarter: 2020Q4

REPORT INFORMATION
  Report Type: Spontaneous
  Country: JP (occurrence: JP)
  Receive Date: 20201125
  Receipt Date: 20201125
  Transmission Date: 20210114
  Serious: Yes (Other)
  Sender: FDA-Public Use
  Company Number: JP-TEVA-2020-JP-1852819

PATIENT
  Age: 79 Year
  Sex: Male

DRUGS (2)
  1. AZILECT [Suspect]
     Active Substance: RASAGILINE MESYLATE
     Indication: PARKINSON^S DISEASE
     Dosage: 1 MILLIGRAM DAILY;
     Route: 048
     Dates: start: 202010, end: 202011
  2. TRERIEF [Concomitant]
     Active Substance: ZONISAMIDE

REACTIONS (1)
  - Sudden onset of sleep [Recovered/Resolved]

NARRATIVE: CASE EVENT DATE: 202011
